FAERS Safety Report 11414753 (Version 1)
Quarter: 2015Q3

REPORT INFORMATION
  Report Type: Spontaneous
  Country: ES (occurrence: ES)
  Receive Date: 20150825
  Receipt Date: 20150825
  Transmission Date: 20151125
  Serious: Yes (Hospitalization, Other)
  Sender: FDA-Public Use
  Company Number: ES-PAR PHARMACEUTICAL COMPANIES-2015SCPR014221

PATIENT

DRUGS (1)
  1. CABERGOLINE. [Suspect]
     Active Substance: CABERGOLINE
     Indication: PROLACTINOMA
     Dosage: 1 MG, WEEKLY (1 MGR)
     Route: 065

REACTIONS (8)
  - Hyperreflexia [Unknown]
  - Brain herniation [Unknown]
  - Hemiplegia [Recovering/Resolving]
  - Gait disturbance [Unknown]
  - Brain stem ischaemia [Unknown]
  - Dysarthria [Unknown]
  - Cerebral ventricle dilatation [Unknown]
  - Hemiparesis [Unknown]
